FAERS Safety Report 10758403 (Version 1)
Quarter: 2015Q1

REPORT INFORMATION
  Report Type: Spontaneous
  Country: US (occurrence: None)
  Receive Date: 20150202
  Receipt Date: 20150202
  Transmission Date: 20150721
  Serious: Yes (Other)
  Sender: FDA-Public Use
  Company Number: None

PATIENT
  Age: 74 Year
  Sex: Female

DRUGS (3)
  1. CIPROFLOXACIN. [Suspect]
     Active Substance: CIPROFLOXACIN
     Indication: URINARY TRACT INFECTION
     Route: 042
     Dates: start: 20150130
  2. IBUPROFEN. [Concomitant]
     Active Substance: IBUPROFEN
  3. CIPROFLOXACIN. [Suspect]
     Active Substance: CIPROFLOXACIN
     Indication: SEPSIS
     Route: 042
     Dates: start: 20150130

REACTIONS (4)
  - Pruritus [None]
  - Infusion related reaction [None]
  - Pain [None]
  - Erythema [None]

NARRATIVE: CASE EVENT DATE: 20150130
